FAERS Safety Report 4700424-9 (Version None)
Quarter: 2005Q2

REPORT INFORMATION
  Report Type: 
  Country: None (occurrence: None)
  Receive Date: 20050627
  Receipt Date: 20050520
  Transmission Date: 20051028
  Serious: Yes (Other)
  Sender: FDA-Public Use
  Company Number: PHNU2005DE02017

PATIENT
  Age: 32 Year
  Sex: Female
  Weight: 87 kg

DRUGS (8)
  1. LEPONEX / CLOZARIL (CLOZAPINE) [Suspect]
     Indication: SCHIZOPHRENIA
     Dosage: UNK, UNK
     Route: 048
     Dates: start: 20050303, end: 20050412
  2. LEPONEX / CLOZARIL (CLOZAPINE) [Suspect]
     Dosage: UNK, UNK
     Route: 048
     Dates: start: 20050418, end: 20050520
  3. RISPERDAL [Concomitant]
     Dates: start: 20041101, end: 20040319
  4. ERGENYL CHRONO [Concomitant]
     Dates: start: 20041101, end: 20050121
  5. ERGENYL CHRONO [Concomitant]
     Dates: start: 20050122, end: 20050127
  6. ERGENYL CHRONO [Concomitant]
     Dates: start: 20050128, end: 20050304
  7. ERGENYL CHRONO [Concomitant]
     Dates: start: 20050305, end: 20050412
  8. DIAZEPAM [Concomitant]
     Dates: start: 20050112, end: 20050621

REACTIONS (8)
  - ABDOMINAL PAIN [None]
  - ALANINE AMINOTRANSFERASE INCREASED [None]
  - ASPARTATE AMINOTRANSFERASE INCREASED [None]
  - C-REACTIVE PROTEIN INCREASED [None]
  - CHOLECYSTITIS ACUTE [None]
  - CHOLESTASIS [None]
  - GAMMA-GLUTAMYLTRANSFERASE INCREASED [None]
  - LIPASE INCREASED [None]
